FAERS Safety Report 9821746 (Version 1)
Quarter: 2014Q1

REPORT INFORMATION
  Report Type: Spontaneous
  Country: US (occurrence: US)
  Receive Date: 20140116
  Receipt Date: 20140116
  Transmission Date: 20141002
  Serious: No
  Sender: FDA-Public Use
  Company Number: US-PFIZER INC-2014011833

PATIENT
  Sex: Male

DRUGS (2)
  1. VFEND [Suspect]
     Indication: FUNGAL INFECTION
     Dosage: UNK
  2. VFEND [Suspect]
     Indication: ARTHRITIS INFECTIVE

REACTIONS (1)
  - Visual impairment [Unknown]
